FAERS Safety Report 13521481 (Version 1)
Quarter: 2017Q2

REPORT INFORMATION
  Report Type: Spontaneous
  Country: US (occurrence: US)
  Receive Date: 20170505
  Receipt Date: 20170505
  Transmission Date: 20170830
  Serious: Yes (Death)
  Sender: FDA-Public Use
  Company Number: None

PATIENT
  Age: 64 Year
  Sex: Male
  Weight: 54 kg

DRUGS (1)
  1. VASOTEC [Suspect]
     Active Substance: ENALAPRIL MALEATE
     Indication: TACHYCARDIA
     Route: 002
     Dates: start: 20150725, end: 20160826

REACTIONS (2)
  - Cerebral thrombosis [None]
  - Cerebral artery embolism [None]

NARRATIVE: CASE EVENT DATE: 20160826
